FAERS Safety Report 4597753-9 (Version None)
Quarter: 2005Q1

REPORT INFORMATION
  Report Type: 
  Country: None (occurrence: None)
  Receive Date: 20050303
  Receipt Date: 20050225
  Transmission Date: 20050727
  Serious: Yes (Life-Threatening, Hospitalization, Disabling)
  Sender: FDA-Public Use
  Company Number: US-MERCK-0502USA03566

PATIENT
  Age: 12 Year
  Sex: Female
  Weight: 40 kg

DRUGS (8)
  1. EMEND [Suspect]
     Indication: PROPHYLAXIS OF NAUSEA AND VOMITING
     Route: 048
  2. EMEND [Suspect]
     Route: 048
  3. EMEND [Suspect]
     Route: 048
  4. EMEND [Suspect]
     Route: 048
  5. CISPLATIN [Suspect]
     Indication: CHEMOTHERAPY
     Route: 065
  6. ETOPOSIDE [Suspect]
     Indication: CHEMOTHERAPY
     Route: 065
  7. DOXORUBICIN [Suspect]
     Indication: CHEMOTHERAPY
     Route: 065
  8. MITOTANE [Concomitant]
     Route: 048

REACTIONS (2)
  - POST PROCEDURAL NAUSEA [None]
  - POST PROCEDURAL VOMITING [None]
